FAERS Safety Report 5376327-6 (Version None)
Quarter: 2007Q2

REPORT INFORMATION
  Report Type: 
  Country: None (occurrence: None)
  Receive Date: 20070627
  Receipt Date: 20070627
  Transmission Date: 20071010
  Serious: No
  Sender: FDA-Public Use
  Company Number: None

PATIENT
  Age: 56 Year
  Sex: Female
  Weight: 93.4 kg

DRUGS (2)
  1. MAGNEVIST [Suspect]
     Indication: SCAN WITH CONTRAST
     Dosage: 16 ML IV PUSH
     Route: 042
     Dates: start: 20070306
  2. SERTRALINE [Concomitant]

REACTIONS (2)
  - EYE PRURITUS [None]
  - SNEEZING [None]
